FAERS Safety Report 4939163-8 (Version None)
Quarter: 2006Q1

REPORT INFORMATION
  Report Type: 
  Country: None (occurrence: None)
  Receive Date: 20060309
  Receipt Date: 20060309
  Transmission Date: 20060701
  Serious: Yes (Hospitalization, Other)
  Sender: FDA-Public Use
  Company Number: None

PATIENT
  Age: 32 Year
  Sex: Male

DRUGS (1)
  1. NAROPIN [Suspect]
     Indication: ANAESTHESIA
     Dosage: 20 ML ONE TIME

REACTIONS (3)
  - GRAND MAL CONVULSION [None]
  - POSTICTAL STATE [None]
  - PROCEDURAL COMPLICATION [None]
